FAERS Safety Report 22629614 (Version 1)
Quarter: 2023Q2

REPORT INFORMATION
  Report Type: Spontaneous
  Country: CN (occurrence: CN)
  Receive Date: 20230622
  Receipt Date: 20230622
  Transmission Date: 20230722
  Serious: Yes (Other)
  Sender: FDA-Public Use
  Company Number: CN-BAYER-2023A083886

PATIENT
  Age: 38 Year
  Sex: Female
  Weight: 63 kg

DRUGS (1)
  1. GADOBUTROL [Suspect]
     Active Substance: GADOBUTROL
     Indication: Magnetic resonance imaging
     Dosage: 7 ML, ONCE
     Route: 030
     Dates: start: 20230612, end: 20230612

REACTIONS (4)
  - Heart rate decreased [None]
  - Rash papular [Recovering/Resolving]
  - Palpitations [None]
  - Oxygen saturation decreased [None]

NARRATIVE: CASE EVENT DATE: 20230612
